FAERS Safety Report 4580270-X (Version None)
Quarter: 2005Q1

REPORT INFORMATION
  Report Type: 
  Country: None (occurrence: None)
  Receive Date: 20050214
  Receipt Date: 20050203
  Transmission Date: 20050727
  Serious: Yes (Death, Congenital Anomaly)
  Sender: FDA-Public Use
  Company Number: NL-GLAXOSMITHKLINE-B0370948A

PATIENT
  Sex: Male

DRUGS (15)
  1. AMOXICILLIN AND CLAVULANATE POTASSIUM [Suspect]
     Dosage: 625MG TWICE PER DAY
     Dates: start: 20040618
  2. FLUVOXAMINE MALEATE [Concomitant]
     Dosage: 50MG PER DAY
     Dates: start: 20040628
  3. HYDROXYZINE [Concomitant]
     Dosage: 25MG PER DAY
     Dates: start: 20040628
  4. NITROFURANTOIN [Concomitant]
     Dosage: 100MG TWICE PER DAY
     Dates: start: 20040617
  5. AMOXICILLIN [Concomitant]
     Dosage: 500MG THREE TIMES PER DAY
     Dates: start: 20040608
  6. LACTITOL MONOHYDRATE [Concomitant]
     Dosage: 1U PER DAY
     Dates: start: 20040604
  7. ACETAMINOPHEN [Concomitant]
     Dosage: 500MG PER DAY
     Dates: start: 20040604
  8. DURAGESIC [Concomitant]
     Dosage: 2.5MG PER DAY
     Dates: start: 20040602
  9. TRAMADOL HCL [Concomitant]
     Dosage: 50MG PER DAY
     Dates: start: 20040528
  10. DICLOFENAC SODIUM RETARD [Concomitant]
     Dosage: 100MG PER DAY
     Dates: start: 20040523
  11. NOZINAN [Concomitant]
     Dosage: 25MG PER DAY
     Route: 065
     Dates: start: 20040415
  12. CLOMIPRAMINE HCL [Concomitant]
     Dosage: 25MG PER DAY
     Dates: start: 20040217
  13. PARACETAMOL + TRAMADOL [Concomitant]
     Dosage: 1TAB THREE TIMES PER DAY
     Dates: start: 20040210
  14. THYRAX [Concomitant]
     Dosage: .025MG PER DAY
     Dates: start: 20040202
  15. LEVOTHYROXINE SODIUM [Concomitant]
     Dates: start: 20040204

REACTIONS (16)
  - APNOEA [None]
  - BONE DEVELOPMENT ABNORMAL [None]
  - CONGENITAL ACROCHORDON [None]
  - CONGENITAL ANOMALY [None]
  - CONGENITAL HEARING DISORDER [None]
  - CONGENITAL HYDROCEPHALUS [None]
  - DEATH NEONATAL [None]
  - DRUG EXPOSURE DURING PREGNANCY [None]
  - EAR MALFORMATION [None]
  - FACIAL DYSMORPHISM [None]
  - MICROGNATHIA [None]
  - NECK DEFORMITY [None]
  - NEONATAL APNOEIC ATTACK [None]
  - OBSTRUCTIVE AIRWAYS DISORDER [None]
  - RETROGNATHIA [None]
  - RIB HYPOPLASIA [None]
